FAERS Safety Report 11653362 (Version 14)
Quarter: 2017Q1

REPORT INFORMATION
  Report Type: Report from Study
  Country: CO (occurrence: CO)
  Receive Date: 20151022
  Receipt Date: 20170120
  Transmission Date: 20170428
  Serious: Yes (Death, Life-Threatening, Hospitalization)
  Sender: FDA-Public Use
  Company Number: PHHY2015CO094376

PATIENT
  Age: 58 Year
  Sex: Female
  Weight: 54 kg

DRUGS (3)
  1. SANDOSTATIN LAR DEPOT [Suspect]
     Active Substance: OCTREOTIDE ACETATE
     Indication: ACROMEGALY
     Dosage: 30 MG, QMO
     Route: 030
     Dates: start: 20150915, end: 201607
  2. LOSARTAN. [Concomitant]
     Active Substance: LOSARTAN
     Indication: BLOOD PRESSURE INCREASED
     Dosage: 50 MG, Q12H
     Route: 048
  3. VERAPAMIL [Concomitant]
     Active Substance: VERAPAMIL HYDROCHLORIDE
     Indication: BLOOD PRESSURE INCREASED
     Dosage: 120 MG, Q12H
     Route: 048

REACTIONS (26)
  - Cardiac disorder [Unknown]
  - Bone disorder [Unknown]
  - Influenza [Unknown]
  - Drug intolerance [Unknown]
  - Drug ineffective [Unknown]
  - Feeling abnormal [Unknown]
  - Pyrexia [Unknown]
  - Musculoskeletal pain [Unknown]
  - Cough [Unknown]
  - Decreased appetite [Unknown]
  - Fall [Unknown]
  - Arthritis [Unknown]
  - Groin pain [Unknown]
  - Aortic dissection [Unknown]
  - Weight decreased [Unknown]
  - Arthralgia [Unknown]
  - Muscle spasms [Unknown]
  - Epistaxis [Unknown]
  - Death [Fatal]
  - Osteitis [Unknown]
  - Pain [Unknown]
  - Injection site mass [Unknown]
  - Vomiting [Unknown]
  - Nausea [Unknown]
  - Saliva altered [Unknown]
  - Headache [Unknown]

NARRATIVE: CASE EVENT DATE: 20150915
